FAERS Safety Report 9640016 (Version 2)
Quarter: 2013Q4

REPORT INFORMATION
  Report Type: Report from Study
  Country: US (occurrence: US)
  Receive Date: 20131023
  Receipt Date: 20131204
  Transmission Date: 20140711
  Serious: Yes (Hospitalization)
  Sender: FDA-Public Use
  Company Number: PHEH2013US021939

PATIENT
  Age: 74 Year
  Sex: Female

DRUGS (2)
  1. TOBI [Suspect]
     Indication: PNEUMONIA PSEUDOMONAL
     Dosage: 300 MG, BID
     Dates: end: 201304
  2. TOBI [Suspect]
     Indication: BRONCHIECTASIS

REACTIONS (1)
  - Pseudomonas infection [Unknown]
